FAERS Safety Report 4400097-9 (Version None)
Quarter: 2004Q3

REPORT INFORMATION
  Report Type: 
  Country: None (occurrence: None)
  Receive Date: 20040714
  Receipt Date: 20040701
  Transmission Date: 20050211
  Serious: Yes (Hospitalization)
  Sender: FDA-Public Use
  Company Number: AU-JNJFOC-20040607186

PATIENT
  Age: 37 Year
  Sex: Female

DRUGS (4)
  1. RISPERDAL CONSTA [Suspect]
     Indication: SCHIZOPHRENIA
     Dosage: SEE IMAGE
     Route: 030
     Dates: start: 20040323, end: 20040621
  2. RISPERDAL CONSTA [Suspect]
     Indication: SCHIZOPHRENIA
     Dosage: SEE IMAGE
     Route: 030
     Dates: start: 20040621
  3. ALCOHOL (ETHANOL) [Suspect]
     Indication: ALCOHOLISM
  4. VALIUM [Concomitant]

REACTIONS (4)
  - ALCOHOL POISONING [None]
  - DRUG TOXICITY [None]
  - HOMICIDAL IDEATION [None]
  - SUICIDAL IDEATION [None]
